FAERS Safety Report 7387875-1 (Version None)
Quarter: 2011Q1

REPORT INFORMATION
  Report Type: 
  Country: None (occurrence: None)
  Receive Date: 20110331
  Receipt Date: 20110104
  Transmission Date: 20110831
  Serious: No
  Sender: FDA-Public Use
  Company Number: AT-AMGEN-UK330047

PATIENT
  Age: 65 Year
  Sex: Female
  Weight: 60 kg

DRUGS (2)
  1. IRINOTECAN HCL [Concomitant]
     Dosage: 1000 MG/M2, UNK
     Route: 042
     Dates: start: 20090122, end: 20090122
  2. PANITUMUMAB [Suspect]
     Indication: COLORECTAL CANCER
     Dosage: 360 MG, Q2WK
     Route: 042
     Dates: start: 20090122, end: 20090122

REACTIONS (1)
  - HYPERSENSITIVITY [None]
